FAERS Safety Report 8461672-8 (Version None)
Quarter: 2012Q2

REPORT INFORMATION
  Report Type: 
  Country: None (occurrence: None)
  Receive Date: 20120625
  Receipt Date: 20120621
  Transmission Date: 20120825
  Serious: Yes (Other)
  Sender: FDA-Public Use
  Company Number: PHHY2012BR053359

PATIENT
  Sex: Male

DRUGS (2)
  1. AMLODIPINE [Suspect]
     Dosage: 1 DF, 160 MG VALS AND 5 MG AMLO
  2. AMLODIPINE [Suspect]
     Dosage: 2 DF, 160 MG VALS AND 5 MG AMLO

REACTIONS (2)
  - BLOOD PRESSURE FLUCTUATION [None]
  - HERNIA [None]
